FAERS Safety Report 5234926-6 (Version None)
Quarter: 2007Q1

REPORT INFORMATION
  Report Type: 
  Country: None (occurrence: None)
  Receive Date: 20070209
  Receipt Date: 20070129
  Transmission Date: 20070707
  Serious: Yes (Other)
  Sender: FDA-Public Use
  Company Number: CA-PFIZER INC-2007009214

PATIENT
  Age: 58 Year
  Sex: Female

DRUGS (3)
  1. LYRICA [Suspect]
     Route: 048
     Dates: start: 20060401, end: 20070128
  2. AMITRIPTYLINE HCL [Concomitant]
  3. SYNTHROID [Concomitant]

REACTIONS (3)
  - EYELID OEDEMA [None]
  - SKIN DEPIGMENTATION [None]
  - SWELLING FACE [None]
